FAERS Safety Report 9094095 (Version 3)
Quarter: 2017Q3

REPORT INFORMATION
  Report Type: Report from Study
  Country: US (occurrence: US)
  Receive Date: 20130201
  Receipt Date: 20170915
  Transmission Date: 20171128
  Serious: Yes (Death)
  Sender: FDA-Public Use
  Company Number: US-ROCHE-1186454

PATIENT
  Sex: Male

DRUGS (3)
  1. XELODA [Suspect]
     Active Substance: CAPECITABINE
     Indication: COLON CANCER
     Dosage: TAKE 4 2 TIMES DAILY FOR 7 DAYS; THEN 7 DAYS OFF
     Route: 048
     Dates: start: 20120502
  2. XELODA [Suspect]
     Active Substance: CAPECITABINE
     Indication: COLON CANCER
  3. OXALIPLATIN. [Concomitant]
     Active Substance: OXALIPLATIN

REACTIONS (1)
  - Malignant neoplasm progression [Fatal]
